FAERS Safety Report 9666574 (Version 1)
Quarter: 2013Q4

REPORT INFORMATION
  Report Type: Spontaneous
  Country: NL (occurrence: NL)
  Receive Date: 20131104
  Receipt Date: 20131104
  Transmission Date: 20140711
  Serious: Yes (Hospitalization)
  Sender: FDA-Public Use
  Company Number: PHHY2013NL124558

PATIENT
  Sex: Female
  Weight: 7 kg

DRUGS (4)
  1. CICLOSPORIN [Suspect]
     Indication: IMMUNOSUPPRESSION
     Dosage: 15 MG, BID
     Dates: start: 20130807, end: 20131021
  2. OMEPRAZOLE [Concomitant]
     Dosage: 1 DF, QD
     Dates: start: 201308
  3. COTRIMOXAZOL [Concomitant]
     Dosage: 216 MG, 3 TIMES PER WEEK
     Route: 048
     Dates: start: 201309
  4. AMLODIPINE BESILATE [Concomitant]
     Dosage: 1 DF, QD
     Dates: start: 201309

REACTIONS (2)
  - Pericarditis [Recovering/Resolving]
  - Dyspnoea [Recovering/Resolving]
